FAERS Safety Report 7683860-0 (Version None)
Quarter: 2011Q3

REPORT INFORMATION
  Report Type: 
  Country: None (occurrence: None)
  Receive Date: 20110815
  Receipt Date: 20110811
  Transmission Date: 20111222
  Serious: Yes (Other)
  Sender: FDA-Public Use
  Company Number: AT-PFIZER INC-2011184382

PATIENT
  Sex: Female

DRUGS (1)
  1. ALPRAZOLAM [Suspect]
     Indication: PANIC ATTACK
     Dosage: 1 MG, UNK
     Route: 048

REACTIONS (6)
  - SOMNOLENCE [None]
  - DYSARTHRIA [None]
  - AMNESIA [None]
  - DRUG PRESCRIBING ERROR [None]
  - BREATH SOUNDS ABNORMAL [None]
  - ALCOHOL INTERACTION [None]
